FAERS Safety Report 25498392 (Version 3)
Quarter: 2025Q3

REPORT INFORMATION
  Report Type: Spontaneous
  Country: GB (occurrence: GB)
  Receive Date: 20250701
  Receipt Date: 20250721
  Transmission Date: 20251021
  Serious: Yes (Other)
  Sender: MYLAN
  Company Number: GB-MYLANLABS-2025M1054854

PATIENT
  Sex: Male

DRUGS (1)
  1. CLOZARIL [Suspect]
     Active Substance: CLOZAPINE
     Indication: Schizophrenia
     Dates: start: 20060731, end: 20250620

REACTIONS (4)
  - Neuroleptic malignant syndrome [Unknown]
  - Dehydration [Unknown]
  - Renal disorder [Unknown]
  - Anaemia [Unknown]
